FAERS Safety Report 14477305 (Version 1)
Quarter: 2018Q1

REPORT INFORMATION
  Report Type: Report from Study
  Country: US (occurrence: US)
  Receive Date: 20180201
  Receipt Date: 20180201
  Transmission Date: 20180509
  Serious: No
  Sender: FDA-Public Use
  Company Number: US-EXELIXIS-CABO-17011045

PATIENT
  Sex: Male

DRUGS (11)
  1. NIZORAL [Concomitant]
     Active Substance: KETOCONAZOLE
  2. IRON [Concomitant]
     Active Substance: IRON
  3. ZOFRAN [Concomitant]
     Active Substance: ONDANSETRON HYDROCHLORIDE
  4. COMETRIQ [Suspect]
     Active Substance: CABOZANTINIB S-MALATE
     Indication: PROSTATE CANCER
     Dosage: 40 MG, QD
     Route: 048
     Dates: start: 20170315, end: 20171003
  5. CALCIUM [Concomitant]
     Active Substance: CALCIUM
  6. NEXIUM [Concomitant]
     Active Substance: ESOMEPRAZOLE MAGNESIUM
  7. LEVOTHYROXIN [Concomitant]
     Active Substance: LEVOTHYROXINE
  8. COMETRIQ [Suspect]
     Active Substance: CABOZANTINIB S-MALATE
     Indication: RENAL CANCER
  9. HUMALOG [Concomitant]
     Active Substance: INSULIN LISPRO
  10. PREDNISONE. [Concomitant]
     Active Substance: PREDNISONE
  11. LANTUS [Concomitant]
     Active Substance: INSULIN GLARGINE

REACTIONS (2)
  - Renal impairment [Unknown]
  - Off label use [Unknown]
